APPROVED DRUG PRODUCT: PRAVASTATIN SODIUM
Active Ingredient: PRAVASTATIN SODIUM
Strength: 10MG
Dosage Form/Route: TABLET;ORAL
Application: A077013 | Product #001
Applicant: PHARMOBEDIENT CONSULTING LLC
Approved: Oct 23, 2006 | RLD: No | RS: No | Type: DISCN